FAERS Safety Report 6173289-9 (Version None)
Quarter: 2009Q2

REPORT INFORMATION
  Report Type: 
  Country: None (occurrence: None)
  Receive Date: 20090428
  Receipt Date: 20090414
  Transmission Date: 20091009
  Serious: Yes (Hospitalization)
  Sender: FDA-Public Use
  Company Number: 2009001141

PATIENT
  Age: 74 Year
  Sex: Female

DRUGS (11)
  1. ERLOTINIB (ERLOTINIB) (TABLET) (ERLOTINIB) [Suspect]
     Indication: PANCREATIC CARCINOMA METASTATIC
     Dosage: (100 MG, QD), ORAL
     Route: 048
     Dates: start: 20090220
  2. GEMCITABINE [Suspect]
     Indication: PANCREATIC CARCINOMA METASTATIC
     Dosage: (1327 MG, QW), INTRAVENOUS
     Route: 042
     Dates: start: 20090220
  3. PANTOPRAZOLE SODIUM [Concomitant]
  4. DICLOFENAC (DICLOFENAC) [Concomitant]
  5. METOPROLOL TARTRATE [Concomitant]
  6. KALINOR BRAUSE [Concomitant]
  7. ACTRAPID (INSULIN) [Concomitant]
  8. PROTAPHANE (INSULIN INJECTION, ISOPHANE) [Concomitant]
  9. DOXYCYCLINE [Concomitant]
  10. KREON (PANCREATIN) [Concomitant]
  11. UREA (UREA) [Concomitant]

REACTIONS (1)
  - VULVITIS [None]
